FAERS Safety Report 10236281 (Version 4)
Quarter: 2015Q4

REPORT INFORMATION
  Report Type: Report from Study
  Country: CA (occurrence: CA)
  Receive Date: 20140613
  Receipt Date: 20151013
  Transmission Date: 20160304
  Serious: Yes (Hospitalization, Other)
  Sender: FDA-Public Use
  Company Number: CA-GLAXOSMITHKLINE-A1005748A

PATIENT
  Sex: Male

DRUGS (2)
  1. BELIMUMAB [Suspect]
     Active Substance: BELIMUMAB
     Indication: SYSTEMIC LUPUS ERYTHEMATOSUS
     Dosage: 800 MG, UNK
     Route: 042
     Dates: start: 20120918, end: 201403
  2. BELIMUMAB [Suspect]
     Active Substance: BELIMUMAB
     Dosage: 800 MG, Z
     Route: 042
     Dates: start: 20120918, end: 20140603

REACTIONS (19)
  - Suicidal ideation [Unknown]
  - Adverse drug reaction [Unknown]
  - Crying [Unknown]
  - Rash [Unknown]
  - Purulent discharge [Unknown]
  - Depressed mood [Unknown]
  - Skin infection [Recovering/Resolving]
  - Bloody discharge [Unknown]
  - Scar [Unknown]
  - Anxiety [Unknown]
  - Wound [Unknown]
  - Rash papular [Recovering/Resolving]
  - Pollakiuria [Unknown]
  - Nasal dryness [Unknown]
  - Panic attack [Unknown]
  - Myocardial infarction [Unknown]
  - Dry throat [Unknown]
  - Depression [Unknown]
  - Psychiatric symptom [Unknown]
